FAERS Safety Report 4921990-4 (Version None)
Quarter: 2006Q1

REPORT INFORMATION
  Report Type: 
  Country: None (occurrence: None)
  Receive Date: 20060222
  Receipt Date: 20060222
  Transmission Date: 20060701
  Serious: Yes (Hospitalization)
  Sender: FDA-Public Use
  Company Number: None

PATIENT
  Age: 87 Year
  Sex: Female
  Weight: 65.6 kg

DRUGS (7)
  1. WARFARIN SODIUM [Suspect]
     Indication: ATRIAL FIBRILLATION
     Dosage: 4 MG PO DAILY CHRONIC
     Route: 048
  2. ASPIRIN [Suspect]
     Dosage: 81 MG PO DAILY CHRONIC
     Route: 048
  3. ENALAPRIL MALEATE [Concomitant]
  4. LASIX [Concomitant]
  5. ASPIRIN [Concomitant]
  6. M.V.I. [Concomitant]
  7. TYLENOL (CAPLET) [Concomitant]

REACTIONS (8)
  - ACUTE RESPIRATORY FAILURE [None]
  - CARDIAC FAILURE CONGESTIVE [None]
  - DIASTOLIC DYSFUNCTION [None]
  - GASTROINTESTINAL HAEMORRHAGE [None]
  - HYPOTENSION [None]
  - PULMONARY HYPERTENSION [None]
  - RENAL FAILURE ACUTE [None]
  - SEPSIS [None]
